FAERS Safety Report 9457201 (Version 2)
Quarter: 2013Q3

REPORT INFORMATION
  Report Type: Report from Study
  Country: CO (occurrence: CO)
  Receive Date: 20130814
  Receipt Date: 20130917
  Transmission Date: 20140515
  Serious: Yes (Other)
  Sender: FDA-Public Use
  Company Number: CO-ROCHE-1260640

PATIENT
  Sex: Female
  Weight: 73 kg

DRUGS (3)
  1. LUCENTIS [Suspect]
     Indication: MACULAR DEGENERATION
     Route: 050
     Dates: start: 20130708
  2. LYRICA [Concomitant]
  3. CATAPRESAN [Concomitant]

REACTIONS (2)
  - VIIth nerve paralysis [Recovered/Resolved]
  - Strabismus [Recovered/Resolved]
